FAERS Safety Report 6149866-8 (Version None)
Quarter: 2009Q2

REPORT INFORMATION
  Report Type: 
  Country: None (occurrence: None)
  Receive Date: 20090409
  Receipt Date: 20090331
  Transmission Date: 20091009
  Serious: Yes (Hospitalization, Other)
  Sender: FDA-Public Use
  Company Number: US-PFIZER INC-2009175289

PATIENT
  Sex: Female
  Weight: 73 kg

DRUGS (1)
  1. DEPO-PROVERA [Suspect]
     Indication: CONTRACEPTION
     Dosage: UNK
     Route: 030
     Dates: end: 20090201

REACTIONS (5)
  - ABDOMINAL PAIN [None]
  - DIABETES MELLITUS [None]
  - EATING DISORDER [None]
  - MALAISE [None]
  - MENORRHAGIA [None]
